FAERS Safety Report 4316252-2 (Version None)
Quarter: 2004Q1

REPORT INFORMATION
  Report Type: 
  Country: None (occurrence: None)
  Receive Date: 20040312
  Receipt Date: 20040304
  Transmission Date: 20041129
  Serious: Yes (Other)
  Sender: FDA-Public Use
  Company Number: US-ROCHE-360905

PATIENT
  Age: 51 Year
  Sex: Male

DRUGS (2)
  1. COPEGUS [Suspect]
     Indication: DRUG USE FOR UNKNOWN INDICATION
     Route: 048
  2. PEGASYS [Suspect]
     Indication: DRUG USE FOR UNKNOWN INDICATION
     Route: 065

REACTIONS (5)
  - DRY SKIN [None]
  - LEUKOPENIA [None]
  - MOUTH ULCERATION [None]
  - PRURITUS [None]
  - STOMATITIS [None]
